FAERS Safety Report 5776487-9 (Version None)
Quarter: 2008Q2

REPORT INFORMATION
  Report Type: 
  Country: None (occurrence: None)
  Receive Date: 20080616
  Receipt Date: 20080529
  Transmission Date: 20081010
  Serious: Yes (Disabling)
  Sender: FDA-Public Use
  Company Number: 8030923

PATIENT
  Age: 32 Year
  Sex: Female
  Weight: 46 kg

DRUGS (10)
  1. NIFEDIPINE [Suspect]
     Indication: INSOMNIA
     Dosage: 10 MG 1/D
     Dates: start: 20040101
  2. AMITRIPTYLINE HCL [Suspect]
     Indication: DEPRESSION
     Dosage: 150 MG 1/D
     Dates: start: 20060701
  3. AMITRIPTYLINE HCL [Suspect]
     Indication: INSOMNIA
     Dosage: 150 MG 1/D
     Dates: start: 20060701
  4. CALCICHEW /00108001/ [Suspect]
     Indication: OSTEOPENIA
     Dosage: 1 DF 1/D
     Dates: start: 19980101
  5. MICROGYNON /00022701/ [Suspect]
     Indication: CONTRACEPTION
     Dosage: 30 MG 1/D
     Dates: start: 20040101
  6. PROVIGIL [Suspect]
     Indication: FATIGUE
     Dosage: 200 MG 1/D PO
     Route: 048
     Dates: start: 20060201, end: 20060301
  7. PROVIGIL [Suspect]
     Indication: MULTIPLE SCLEROSIS
     Dosage: 200 MG 1/D PO
     Route: 048
     Dates: start: 20060201, end: 20060301
  8. PROVIGIL [Suspect]
     Indication: FATIGUE
     Dosage: PO
     Route: 048
     Dates: start: 20061001, end: 20080204
  9. PROVIGIL [Suspect]
     Indication: MULTIPLE SCLEROSIS
     Dosage: PO
     Route: 048
     Dates: start: 20061001, end: 20080204
  10. MULTI-VITAMIN [Concomitant]

REACTIONS (6)
  - DEPRESSION [None]
  - DRUG INTERACTION [None]
  - INFECTION [None]
  - INSOMNIA [None]
  - LUPUS-LIKE SYNDROME [None]
  - RAYNAUD'S PHENOMENON [None]
